FAERS Safety Report 20707430 (Version 1)
Quarter: 2022Q2

REPORT INFORMATION
  Report Type: Spontaneous
  Country: US (occurrence: US)
  Receive Date: 20220413
  Receipt Date: 20220413
  Transmission Date: 20220720
  Serious: No
  Sender: FDA-Public Use
  Company Number: US-PHARMING-PHAUS2022000249

PATIENT

DRUGS (13)
  1. RUCONEST [Suspect]
     Active Substance: HUMAN C1-ESTERASE INHIBITOR
     Indication: Hereditary angioedema
     Dosage: 4200 IU, PRN
     Route: 042
     Dates: start: 20220402
  2. OMEPRAZOLE [Concomitant]
     Active Substance: OMEPRAZOLE
     Indication: Product used for unknown indication
  3. EPINEPHRINE [Concomitant]
     Active Substance: EPINEPHRINE
     Indication: Product used for unknown indication
  4. DIPHENHYDRAMINE [Concomitant]
     Active Substance: DIPHENHYDRAMINE
     Indication: Product used for unknown indication
  5. HAEGARDA [Concomitant]
     Active Substance: HUMAN C1-ESTERASE INHIBITOR
     Indication: Product used for unknown indication
  6. LUMIGAN [Concomitant]
     Active Substance: BIMATOPROST
     Indication: Product used for unknown indication
  7. ALPHAGAN P [Concomitant]
     Active Substance: BRIMONIDINE TARTRATE
     Indication: Product used for unknown indication
  8. ASPIRIN                            /00002701/ [Concomitant]
     Indication: Product used for unknown indication
  9. ROSUVASTATIN CALCIUM [Concomitant]
     Active Substance: ROSUVASTATIN CALCIUM
     Indication: Product used for unknown indication
  10. CALCIUM [Concomitant]
     Active Substance: CALCIUM
     Indication: Product used for unknown indication
  11. MULTIVITAMIN                       /00097801/ [Concomitant]
     Indication: Product used for unknown indication
  12. PROAIR HFA [Concomitant]
     Active Substance: ALBUTEROL SULFATE
     Indication: Product used for unknown indication
  13. DILTIAZEM [Concomitant]
     Active Substance: DILTIAZEM
     Indication: Product used for unknown indication

REACTIONS (2)
  - Periorbital swelling [Unknown]
  - Swelling face [Unknown]

NARRATIVE: CASE EVENT DATE: 20220411
